FAERS Safety Report 13059832 (Version 8)
Quarter: 2017Q3

REPORT INFORMATION
  Report Type: Spontaneous
  Country: KR (occurrence: KR)
  Receive Date: 20161223
  Receipt Date: 20170823
  Transmission Date: 20171127
  Serious: Yes (Hospitalization, Other)
  Sender: FDA-Public Use
  Company Number: KR-009507513-1612KOR012051

PATIENT
  Age: 59 Year
  Sex: Male

DRUGS (15)
  1. MOPUREN [Concomitant]
     Indication: PROPHYLAXIS
     Dosage: 5 MG, ONCE
     Route: 048
     Dates: start: 20161207, end: 20161207
  2. CISPLATIN. [Concomitant]
     Active Substance: CISPLATIN
     Indication: CHEMOTHERAPY
     Dosage: 80 MG, ONCE
     Route: 042
     Dates: start: 20161214, end: 20161214
  3. DEXAMETHASONE SODIUM PHOSPHATE. [Concomitant]
     Active Substance: DEXAMETHASONE SODIUM PHOSPHATE
     Indication: ANTIEMETIC SUPPORTIVE CARE
     Dosage: 12 MG, ONCE
     Route: 042
     Dates: start: 20161214, end: 20161214
  4. FOLIC ACID. [Concomitant]
     Active Substance: FOLIC ACID
     Indication: PREMEDICATION
     Dosage: 1 MG, QD
     Route: 048
     Dates: start: 20161203, end: 20161213
  5. MEPERIDINE HYDROCHLORIDE. [Concomitant]
     Active Substance: MEPERIDINE HYDROCHLORIDE
     Indication: PREMEDICATION
     Dosage: 25 MG, ONCE
     Route: 042
     Dates: start: 20161206, end: 20161206
  6. DEXAMETHASONE SODIUM PHOSPHATE. [Concomitant]
     Active Substance: DEXAMETHASONE SODIUM PHOSPHATE
     Dosage: 8 MG, QD
     Route: 042
     Dates: start: 20161215, end: 20161216
  7. ALOXI [Concomitant]
     Active Substance: PALONOSETRON HYDROCHLORIDE
     Indication: ANTIEMETIC SUPPORTIVE CARE
     Dosage: 0.25MG, ONCE
     Route: 042
     Dates: start: 20161214, end: 20161214
  8. HYDROMORPHONE HYDROCHLORIDE. [Concomitant]
     Active Substance: HYDROMORPHONE HYDROCHLORIDE
     Indication: DYSPNOEA
     Dosage: 4 MG, QD
     Route: 048
     Dates: start: 20161209, end: 20161216
  9. CEFTRIAXONE SODIUM. [Concomitant]
     Active Substance: CEFTRIAXONE SODIUM
     Indication: PNEUMONIA
     Dosage: 2 G, QD
     Route: 042
     Dates: start: 20161130, end: 20161214
  10. EMEND (FOSAPREPITANT DIMEGLUMINE) [Suspect]
     Active Substance: FOSAPREPITANT DIMEGLUMINE
     Indication: PROPHYLAXIS OF NAUSEA AND VOMITING
     Dosage: 150 MG, ONCE
     Route: 042
     Dates: start: 20161214, end: 20161214
  11. LASIX [Concomitant]
     Active Substance: FUROSEMIDE
     Indication: PREMEDICATION
     Dosage: 20 MG, ONCE
     Route: 042
     Dates: start: 20161214, end: 20161214
  12. LASTET [Concomitant]
     Active Substance: ETOPOSIDE
     Indication: CHEMOTHERAPY
     Dosage: 115 MG, QD
     Route: 042
     Dates: start: 20161214, end: 20161215
  13. MANNITOL. [Concomitant]
     Active Substance: MANNITOL
     Indication: PREMEDICATION
     Dosage: 100 ML, ONCE
     Route: 042
     Dates: start: 20161214, end: 20161214
  14. ACTINAMIDE [Concomitant]
     Indication: PREMEDICATION
     Dosage: 1 MG, ONCE
     Route: 030
     Dates: start: 20161203, end: 20161203
  15. PHYTONADIONE. [Concomitant]
     Active Substance: PHYTONADIONE
     Indication: HAEMORRHAGE PROPHYLAXIS
     Dosage: 10 MG, ONCE
     Route: 042
     Dates: start: 20161206, end: 20161206

REACTIONS (4)
  - Sepsis [Recovered/Resolved with Sequelae]
  - Neutropenia [Recovered/Resolved]
  - Pneumonia [Recovered/Resolved with Sequelae]
  - Hypophosphataemia [Recovered/Resolved]

NARRATIVE: CASE EVENT DATE: 20161216
